FAERS Safety Report 14309595 (Version 1)
Quarter: 2017Q4

REPORT INFORMATION
  Report Type: Spontaneous
  Country: US (occurrence: US)
  Receive Date: 20171220
  Receipt Date: 20171220
  Transmission Date: 20180321
  Serious: No
  Sender: FDA-Public Use
  Company Number: US-TEIKOKU PHARMA USA-TPU2017-00728

PATIENT
  Sex: Male
  Weight: 79.45 kg

DRUGS (3)
  1. SINEMET [Concomitant]
     Active Substance: CARBIDOPA\LEVODOPA
     Dosage: 25/100MG
  2. LIDOCAINE PATCH [Suspect]
     Active Substance: LIDOCAINE
     Indication: PARKINSON^S DISEASE
     Dosage: USUALLY 2 PATCHES AT THE MOST, USED 3 YESTERDAY, APPLIES EVERY 12 HOURS
     Route: 046
  3. KEPPRA [Concomitant]
     Active Substance: LEVETIRACETAM

REACTIONS (1)
  - Inappropriate schedule of drug administration [Unknown]
